FAERS Safety Report 18743983 (Version 1)
Quarter: 2021Q1

REPORT INFORMATION
  Report Type: Spontaneous
  Country: CA (occurrence: CA)
  Receive Date: 20210114
  Receipt Date: 20210114
  Transmission Date: 20210419
  Serious: Yes (Hospitalization)
  Sender: FDA-Public Use
  Company Number: CA-JNJFOC-20210108813

PATIENT
  Age: 63 Year
  Sex: Female
  Weight: 58 kg

DRUGS (2)
  1. AMOXICILLIN;CLAVULANIC ACID [Suspect]
     Active Substance: AMOXICILLIN\CLAVULANIC ACID
     Indication: PNEUMONIA
     Dosage: 875/125
     Route: 065
  2. SPORANOX [Suspect]
     Active Substance: ITRACONAZOLE
     Indication: BRONCHOPULMONARY ASPERGILLOSIS ALLERGIC
     Route: 065

REACTIONS (9)
  - Hyperbilirubinaemia [Unknown]
  - Chromaturia [Unknown]
  - Decreased appetite [Unknown]
  - Liver function test abnormal [Unknown]
  - Nausea [Unknown]
  - Faeces pale [Unknown]
  - Pruritus [Unknown]
  - Jaundice [Unknown]
  - Hepatic function abnormal [Unknown]
